FAERS Safety Report 5818966-1 (Version None)
Quarter: 2008Q3

REPORT INFORMATION
  Report Type: 
  Country: None (occurrence: None)
  Receive Date: 20080717
  Receipt Date: 20080703
  Transmission Date: 20090109
  Serious: Yes (Other)
  Sender: FDA-Public Use
  Company Number: US024023

PATIENT
  Age: 41 Year
  Sex: Male

DRUGS (2)
  1. MODAFINIL [Suspect]
     Dosage: ORAL
     Route: 048
     Dates: start: 20080101
  2. CONCERTA [Concomitant]

REACTIONS (2)
  - ERYTHEMA MULTIFORME [None]
  - SKIN EXFOLIATION [None]
